FAERS Safety Report 9666665 (Version 1)
Quarter: 2013Q4

REPORT INFORMATION
  Report Type: Spontaneous
  Country: US (occurrence: None)
  Receive Date: 20131101
  Receipt Date: 20131101
  Transmission Date: 20140711
  Serious: Yes (Hospitalization)
  Sender: FDA-Public Use
  Company Number: None

PATIENT
  Age: 79 Year
  Sex: Male
  Weight: 82.56 kg

DRUGS (8)
  1. RECLAST [Suspect]
     Indication: OSTEOPENIA
     Route: 042
     Dates: start: 20131010, end: 20131010
  2. PREDNISONE [Concomitant]
  3. SOTALOL [Concomitant]
  4. LISINOPRIL [Concomitant]
  5. CARVEDILOL [Concomitant]
  6. AVODART [Concomitant]
  7. FUROSEMIDE [Concomitant]
  8. SYNTHROID [Concomitant]

REACTIONS (3)
  - Paralysis [None]
  - Blood magnesium decreased [None]
  - White blood cell count increased [None]
